FAERS Safety Report 13568555 (Version 2)
Quarter: 2017Q2

REPORT INFORMATION
  Report Type: Report from Study
  Country: CA (occurrence: CA)
  Receive Date: 20170522
  Receipt Date: 20170612
  Transmission Date: 20170830
  Serious: Yes (Hospitalization)
  Sender: FDA-Public Use
  Company Number: CA-GLAXOSMITHKLINE-CA2017GSK014438

PATIENT
  Sex: Female
  Weight: 81.5 kg

DRUGS (2)
  1. MEPOLIZUMAB [Suspect]
     Active Substance: MEPOLIZUMAB
     Indication: ASTHMA
     Dosage: 100 MG, Z
     Route: 042
  2. MEPOLIZUMAB [Suspect]
     Active Substance: MEPOLIZUMAB
     Dosage: 100 MG, Z
     Route: 042
     Dates: start: 20170516

REACTIONS (6)
  - Asthma [Recovering/Resolving]
  - Wheezing [Unknown]
  - Weight increased [Unknown]
  - Dyspnoea [Unknown]
  - Weight decreased [Unknown]
  - Drug effect incomplete [Unknown]
